FAERS Safety Report 17538196 (Version 2)
Quarter: 2020Q2

REPORT INFORMATION
  Report Type: Spontaneous
  Country: US (occurrence: US)
  Receive Date: 20200313
  Receipt Date: 20200420
  Transmission Date: 20200713
  Serious: Yes (Hospitalization)
  Sender: FDA-Public Use
  Company Number: US-ASTRAZENECA-2020SE35957

PATIENT
  Age: 130 Day
  Sex: Male
  Weight: 7.7 kg

DRUGS (6)
  1. SYNAGIS [Suspect]
     Active Substance: PALIVIZUMAB
     Indication: ANTIVIRAL PROPHYLAXIS
     Dosage: 15MG/ML MONTHLY
     Route: 030
     Dates: start: 20200131
  2. SYNAGIS [Suspect]
     Active Substance: PALIVIZUMAB
     Indication: PREMATURE BABY
     Dosage: 15MG/ML MONTHLY
     Route: 030
     Dates: start: 20200131
  3. SYNAGIS [Suspect]
     Active Substance: PALIVIZUMAB
     Indication: RESPIRATORY DISORDER
     Dosage: 0.96ML UNKNOWN
     Route: 030
     Dates: start: 20200206
  4. SYNAGIS [Suspect]
     Active Substance: PALIVIZUMAB
     Indication: ANTIVIRAL PROPHYLAXIS
     Dosage: 0.96ML UNKNOWN
     Route: 030
     Dates: start: 20200206
  5. SYNAGIS [Suspect]
     Active Substance: PALIVIZUMAB
     Indication: RESPIRATORY DISORDER
     Dosage: 15MG/ML MONTHLY
     Route: 030
     Dates: start: 20200131
  6. SYNAGIS [Suspect]
     Active Substance: PALIVIZUMAB
     Indication: PREMATURE BABY
     Dosage: 0.96ML UNKNOWN
     Route: 030
     Dates: start: 20200206

REACTIONS (2)
  - Adenovirus infection [Unknown]
  - Rhinovirus infection [Recovered/Resolved]

NARRATIVE: CASE EVENT DATE: 20200218
